FAERS Safety Report 8854809 (Version 1)
Quarter: 2012Q4

REPORT INFORMATION
  Report Type: 
  Country: FI (occurrence: FI)
  Receive Date: 20121023
  Receipt Date: 20121023
  Transmission Date: 20130627
  Serious: Yes (Hospitalization, Disabling)
  Sender: FDA-Public Use
  Company Number: PHHY2012FI093723

PATIENT
  Age: 67 Year
  Sex: Female

DRUGS (5)
  1. ACLASTA [Suspect]
     Indication: OSTEOGENESIS IMPERFECTA
     Dosage: 5 mg, every 6 months
     Route: 042
     Dates: start: 20111026
  2. ACLASTA [Suspect]
     Dosage: 5 mg, every 6 months
     Route: 042
     Dates: end: 20120907
  3. DIOVAN [Concomitant]
     Dosage: 1 DF, UNK
  4. NATRILIX [Concomitant]
     Dosage: 1.5 mg, UNK
  5. PANADOL FORTE [Concomitant]
     Dosage: 1 tablet 1-3 times a day

REACTIONS (4)
  - Fall [Not Recovered/Not Resolved]
  - Femur fracture [Not Recovered/Not Resolved]
  - Joint injury [Not Recovered/Not Resolved]
  - Inappropriate schedule of drug administration [Unknown]
